FAERS Safety Report 6529973-8 (Version None)
Quarter: 2010Q1

REPORT INFORMATION
  Report Type: 
  Country: None (occurrence: None)
  Receive Date: 20100107
  Receipt Date: 20091225
  Transmission Date: 20100710
  Serious: Yes (Hospitalization)
  Sender: FDA-Public Use
  Company Number: JP-BRISTOL-MYERS SQUIBB COMPANY-14664452

PATIENT
  Age: 79 Year
  Sex: Male
  Weight: 50 kg

DRUGS (9)
  1. ERBITUX [Suspect]
     Indication: COLON CANCER
     Dosage: 1ST INF:09FEB09 16FEB09-17MAR09:380MG 4TH INF:23MAR09:600MG 7TH INF:30MAR09:380MG 3JUL09 RESUMED
     Route: 042
     Dates: start: 20090209, end: 20090209
  2. IRINOTECAN HCL [Concomitant]
     Indication: COLON CANCER
     Dosage: 1ST INF ON 09FEB09
     Route: 042
     Dates: start: 20090209, end: 20090323
  3. RESTAMIN [Concomitant]
     Indication: PREMEDICATION
     Dosage: TABS
     Route: 048
     Dates: start: 20090209, end: 20090330
  4. DECADRON [Concomitant]
     Indication: PREMEDICATION
     Dosage: DURATION NOT PROVIDED
     Route: 042
     Dates: start: 20090209, end: 20090330
  5. GRANISETRON [Concomitant]
     Indication: ANTIEMETIC SUPPORTIVE CARE
     Route: 042
     Dates: start: 20090209, end: 20090303
  6. PARIET [Concomitant]
     Indication: PROPHYLAXIS AGAINST GASTROINTESTINAL ULCER
     Dosage: TABS
     Route: 048
  7. ADALAT [Concomitant]
     Indication: HYPERTENSION
     Dosage: TABS
     Route: 048
  8. SEIBULE [Concomitant]
     Indication: DIABETES MELLITUS
     Dosage: TABS
     Route: 048
  9. AMARYL [Concomitant]
     Indication: DIABETES MELLITUS
     Dosage: TABS
     Route: 048

REACTIONS (2)
  - HYPOALBUMINAEMIA [None]
  - OEDEMA [None]
